FAERS Safety Report 5017706-6 (Version None)
Quarter: 2006Q2

REPORT INFORMATION
  Report Type: 
  Country: None (occurrence: None)
  Receive Date: 20060525
  Receipt Date: 20060515
  Transmission Date: 20061013
  Serious: No
  Sender: FDA-Public Use
  Company Number: TPA2006A00836

PATIENT
  Age: 51 Year
  Sex: Male
  Weight: 83.9154 kg

DRUGS (4)
  1. ROZEREM [Suspect]
     Indication: SLEEP DISORDER
     Dosage: SEE IMAGE
     Route: 048
     Dates: start: 20060320, end: 20060414
  2. CLONAZEPAM [Concomitant]
  3. DIAZEPAM (DIAZEPAM) (14 MILLIGRAM) [Concomitant]
  4. LEVOXYL (LEVOTHYROXINE SODIUM) (100 MICROGRAM) [Concomitant]

REACTIONS (3)
  - DRUG INEFFECTIVE [None]
  - INSOMNIA [None]
  - NERVOUSNESS [None]
